FAERS Safety Report 10166737 (Version 1)
Quarter: 2014Q2

REPORT INFORMATION
  Report Type: Spontaneous
  Country: US (occurrence: None)
  Receive Date: 20140509
  Receipt Date: 20140509
  Transmission Date: 20141212
  Serious: No
  Sender: FDA-Public Use
  Company Number: None

PATIENT
  Age: 73 Year
  Sex: Male
  Weight: 87.2 kg

DRUGS (4)
  1. CISPLATIN [Suspect]
     Dates: end: 20120904
  2. ALIMTA [Suspect]
     Dates: end: 20120904
  3. ALBUTEROL SULFATE NEBULIZER SOLUTION [Concomitant]
  4. DEXAMETHASONE 4MG [Concomitant]

REACTIONS (3)
  - Abdominal pain [None]
  - Large intestine perforation [None]
  - Metastasis [None]
